FAERS Safety Report 20725005 (Version 11)
Quarter: 2022Q4

REPORT INFORMATION
  Report Type: Report from Study
  Country: CA (occurrence: CA)
  Receive Date: 20220419
  Receipt Date: 20221221
  Transmission Date: 20230112
  Serious: Yes (Death, Hospitalization, Other)
  Sender: FDA-Public Use
  Company Number: CA-GILEAD-2022-0574831

PATIENT
  Sex: Female
  Weight: 63 kg

DRUGS (31)
  1. SACITUZUMAB GOVITECAN-HZIY [Suspect]
     Active Substance: SACITUZUMAB GOVITECAN-HZIY
     Indication: Triple negative breast cancer
     Dosage: 640 MG C1D1
     Route: 042
     Dates: start: 20220224, end: 20221208
  2. SACITUZUMAB GOVITECAN-HZIY [Suspect]
     Active Substance: SACITUZUMAB GOVITECAN-HZIY
     Dosage: 589 MG
     Route: 042
  3. SACITUZUMAB GOVITECAN-HZIY [Suspect]
     Active Substance: SACITUZUMAB GOVITECAN-HZIY
     Dosage: C1D8
     Route: 042
     Dates: start: 20220303
  4. SACITUZUMAB GOVITECAN-HZIY [Suspect]
     Active Substance: SACITUZUMAB GOVITECAN-HZIY
     Dosage: C2D1
     Route: 042
     Dates: start: 20220317
  5. SACITUZUMAB GOVITECAN-HZIY [Suspect]
     Active Substance: SACITUZUMAB GOVITECAN-HZIY
     Dosage: C3D1 AND C3D8
     Route: 042
     Dates: start: 20220413, end: 20220419
  6. SACITUZUMAB GOVITECAN-HZIY [Suspect]
     Active Substance: SACITUZUMAB GOVITECAN-HZIY
     Dosage: C4D1 AND C4D8
     Route: 042
     Dates: start: 20220503, end: 20220510
  7. SACITUZUMAB GOVITECAN-HZIY [Suspect]
     Active Substance: SACITUZUMAB GOVITECAN-HZIY
     Dosage: C5D1 AND C5D8
     Route: 042
     Dates: start: 20220524, end: 20220531
  8. SACITUZUMAB GOVITECAN-HZIY [Suspect]
     Active Substance: SACITUZUMAB GOVITECAN-HZIY
     Dosage: 591 MG
     Route: 042
     Dates: start: 20220224
  9. SACITUZUMAB GOVITECAN-HZIY [Suspect]
     Active Substance: SACITUZUMAB GOVITECAN-HZIY
     Dosage: 640 MG
     Route: 042
  10. SACITUZUMAB GOVITECAN-HZIY [Suspect]
     Active Substance: SACITUZUMAB GOVITECAN-HZIY
     Dosage: 600 MG
     Route: 042
     Dates: start: 20220224
  11. SACITUZUMAB GOVITECAN-HZIY [Suspect]
     Active Substance: SACITUZUMAB GOVITECAN-HZIY
     Dosage: 620 MG CHANGED FROM 600 MG
     Route: 042
  12. XELODA [Concomitant]
     Active Substance: CAPECITABINE
  13. PEMBROLIZUMAB [Concomitant]
     Active Substance: PEMBROLIZUMAB
  14. PACLITAXEL [Concomitant]
     Active Substance: PACLITAXEL
  15. CARBOPLATIN\GEMCITABINE [Concomitant]
     Active Substance: CARBOPLATIN\GEMCITABINE
  16. CYCLOPHOSPHAMIDE\DOXORUBICIN [Concomitant]
     Active Substance: CYCLOPHOSPHAMIDE\DOXORUBICIN
  17. FASENRA [Concomitant]
     Active Substance: BENRALIZUMAB
  18. ACETAMINOPHEN [Concomitant]
     Active Substance: ACETAMINOPHEN
     Dosage: 650 MG PO (PRE-MEDICATION PRIOR TO TRODELVY)
  19. ACETAMINOPHEN [Concomitant]
     Active Substance: ACETAMINOPHEN
     Dosage: 650 MG PO (PRE-MEDICATION PRIOR TO TRODELVY)
  20. ACETAMINOPHEN [Concomitant]
     Active Substance: ACETAMINOPHEN
     Dosage: 650 MG PO (PRE-MEDICATION PRIOR TO TRODELVY)
  21. ACETAMINOPHEN [Concomitant]
     Active Substance: ACETAMINOPHEN
     Dosage: 650 MG PO PREMEDICATION
  22. DIPHENHYDRAMINE [Concomitant]
     Active Substance: DIPHENHYDRAMINE
     Dosage: 50 MG PO (PRE-MEDICATION PRIOR TO TRODELVY)
  23. DIPHENHYDRAMINE [Concomitant]
     Active Substance: DIPHENHYDRAMINE
     Dosage: 50 MG PO (PRE-MEDICATION PRIOR TO TRODELVY)
  24. DIPHENHYDRAMINE [Concomitant]
     Active Substance: DIPHENHYDRAMINE
     Dosage: 50 MG PO (PRE-MEDICATION PRIOR TO TRODELVY)
  25. DIPHENHYDRAMINE [Concomitant]
     Active Substance: DIPHENHYDRAMINE
     Dosage: 50 MG PO PREMEDICATION
  26. DEXMETHSONE [DEXAMETHASONE SODIUM PHOSPHATE] [Concomitant]
     Dosage: 16 MG PO (PRE-MEDICATION PRIOR TO TRODELVY)
  27. ONDANSETRON [Concomitant]
     Active Substance: ONDANSETRON
     Dosage: 24 MG PO (PRE-MEDICATION PRIOR TO TRODELVY)
  28. ONDANSETRON [Concomitant]
     Active Substance: ONDANSETRON
     Dosage: 24 MG PO (PRE-MEDICATION PRIOR TO TRODELVY)
  29. ONDANSETRON [Concomitant]
     Active Substance: ONDANSETRON
     Dosage: 24 MG PO (PRE-MEDICATION PRIOR TO TRODELVY)
  30. ONDANSETRON [Concomitant]
     Active Substance: ONDANSETRON
     Dosage: 24 MG PO PREMEDICATION
  31. DEXAMETHASONE [Concomitant]
     Active Substance: DEXAMETHASONE
     Dosage: DECADRON 16 MG PO PREMEDICATION

REACTIONS (13)
  - Death [Fatal]
  - SARS-CoV-2 test positive [Unknown]
  - Malaise [Unknown]
  - Weight increased [Unknown]
  - Wound drainage [Not Recovered/Not Resolved]
  - Skin infection [Unknown]
  - Weight decreased [Not Recovered/Not Resolved]
  - Product dose omission issue [Unknown]
  - Inappropriate schedule of product administration [Unknown]
  - Weight fluctuation [Unknown]
  - Weight fluctuation [Unknown]
  - Inappropriate schedule of product administration [Unknown]
  - Heart rate increased [Unknown]

NARRATIVE: CASE EVENT DATE: 20220101
